FAERS Safety Report 9810816 (Version 2)
Quarter: 2014Q1

REPORT INFORMATION
  Report Type: Spontaneous
  Country: US (occurrence: US)
  Receive Date: 20140110
  Receipt Date: 20140110
  Transmission Date: 20141002
  Serious: Yes (Hospitalization)
  Sender: FDA-Public Use
  Company Number: US-SANOFI-AVENTIS-2013SA001350

PATIENT
  Age: 70 Year
  Sex: Female
  Weight: 92 kg

DRUGS (18)
  1. CLOPIDOGREL BISULFATE [Suspect]
     Indication: ACUTE CORONARY SYNDROME
     Route: 048
     Dates: start: 20121219, end: 20121219
  2. CLOPIDOGREL BISULFATE [Suspect]
     Indication: ACUTE CORONARY SYNDROME
     Route: 048
  3. ASPIRIN [Suspect]
     Indication: ACUTE CORONARY SYNDROME
     Route: 048
     Dates: start: 20121219
  4. ASPIRIN [Suspect]
     Indication: ACUTE CORONARY SYNDROME
     Route: 048
  5. OTAMIXABAN [Suspect]
     Indication: ACUTE CORONARY SYNDROME
     Route: 042
     Dates: start: 20121219, end: 20121219
  6. IMDUR [Concomitant]
     Dates: end: 20121221
  7. METOPROLOL [Concomitant]
  8. PROTONIX [Concomitant]
     Dates: start: 20121219
  9. LEVEMIR INSULIN [Concomitant]
     Dosage: DOSE:20 UNIT(S)
     Dates: start: 20121219, end: 20121219
  10. NICODERM [Concomitant]
     Dates: start: 20121219
  11. MAALOX [Concomitant]
     Dates: start: 20121219, end: 20121219
  12. XANAX [Concomitant]
     Dates: end: 20121219
  13. ZOFRAN [Concomitant]
     Dates: start: 20121219, end: 20121219
  14. LEVOTHYROXINE [Concomitant]
     Dates: start: 20120823
  15. PRAVACHOL [Concomitant]
  16. MIDAZOLAM [Concomitant]
     Dates: start: 20121219, end: 20121219
  17. FENTANYL [Concomitant]
     Dates: start: 20121219, end: 20121219
  18. LIDOCAINE [Concomitant]
     Dates: start: 20121219, end: 20121219

REACTIONS (1)
  - Gastrointestinal haemorrhage [Recovered/Resolved]
